FAERS Safety Report 13347884 (Version 1)
Quarter: 2017Q1

REPORT INFORMATION
  Report Type: Spontaneous
  Country: PT (occurrence: PT)
  Receive Date: 20170317
  Receipt Date: 20170317
  Transmission Date: 20170428
  Serious: Yes (Other)
  Sender: FDA-Public Use
  Company Number: PT-IMPAX LABORATORIES, INC-2017-IPXL-00642

PATIENT
  Age: 39 Year
  Sex: Male

DRUGS (1)
  1. BUPROPION HYDROCHLORIDE EXTENDED-RELEASE [Suspect]
     Active Substance: BUPROPION HYDROCHLORIDE
     Indication: SMOKING CESSATION THERAPY
     Dosage: 300 MG, DAILY
     Route: 048

REACTIONS (2)
  - Erythrodermic psoriasis [Recovered/Resolved]
  - Psoriasis [Recovered/Resolved]
